FAERS Safety Report 9400048 (Version 1)
Quarter: 2013Q3

REPORT INFORMATION
  Report Type: Spontaneous
  Country: US (occurrence: US)
  Receive Date: 20130715
  Receipt Date: 20130715
  Transmission Date: 20140515
  Serious: No
  Sender: FDA-Public Use
  Company Number: US-TEVA-398743USA

PATIENT
  Sex: 0

DRUGS (1)
  1. SYNRIBO [Suspect]
     Dates: start: 20130410

REACTIONS (1)
  - Ageusia [Unknown]
